FAERS Safety Report 7704187-4 (Version None)
Quarter: 2011Q3

REPORT INFORMATION
  Report Type: 
  Country: None (occurrence: None)
  Receive Date: 20110801
  Receipt Date: 20110506
  Transmission Date: 20111222
  Serious: Yes (Hospitalization, Other)
  Sender: FDA-Public Use
  Company Number: AMAG201100119

PATIENT
  Sex: Female

DRUGS (2)
  1. FERAHEME [Suspect]
     Indication: IRON DEFICIENCY ANAEMIA
     Dosage: 510 MG, SINGLE, INTRAVENOUS
     Route: 042
     Dates: start: 20110506, end: 20110506
  2. THYROID THERAPY [Concomitant]

REACTIONS (7)
  - RASH [None]
  - DIZZINESS [None]
  - HYPOTENSION [None]
  - FEELING HOT [None]
  - HYPERSENSITIVITY [None]
  - PALLOR [None]
  - SLUGGISHNESS [None]
